FAERS Safety Report 15036740 (Version 1)
Quarter: 2018Q2

REPORT INFORMATION
  Report Type: Spontaneous
  Country: US (occurrence: US)
  Receive Date: 20180530
  Receipt Date: 20180530
  Transmission Date: 20180711
  Serious: Yes (Other)
  Sender: FDA-Public Use
  Company Number: None

PATIENT
  Age: 54 Year
  Sex: Male
  Weight: 72.57 kg

DRUGS (2)
  1. RITONAVIR. [Suspect]
     Active Substance: RITONAVIR
     Indication: ACQUIRED IMMUNODEFICIENCY SYNDROME
  2. ABACAVIR. [Suspect]
     Active Substance: ABACAVIR

REACTIONS (2)
  - Dizziness [None]
  - Somnolence [None]

NARRATIVE: CASE EVENT DATE: 20180329
